FAERS Safety Report 5261218-1 (Version None)
Quarter: 2007Q1

REPORT INFORMATION
  Report Type: 
  Country: None (occurrence: None)
  Receive Date: 20070309
  Receipt Date: 20070226
  Transmission Date: 20070707
  Serious: Yes (Hospitalization, Other)
  Sender: FDA-Public Use
  Company Number: US-PFIZER INC-2007015482

PATIENT
  Sex: Female
  Weight: 50.8 kg

DRUGS (13)
  1. CHANTIX [Interacting]
     Indication: SMOKING CESSATION THERAPY
     Dates: start: 20070201, end: 20070201
  2. LIPITOR [Suspect]
     Indication: BLOOD CHOLESTEROL INCREASED
  3. ZYRTEC [Suspect]
     Indication: MULTIPLE ALLERGIES
  4. XANAX [Suspect]
     Indication: DEPRESSION
  5. BENADRYL [Suspect]
  6. CONTRAST MEDIA [Interacting]
     Indication: COMPUTERISED TOMOGRAM
     Dates: start: 20070201, end: 20070201
  7. CRESTOR [Concomitant]
  8. ZOCOR [Concomitant]
  9. ALL OTHER THERAPEUTIC PRODUCTS [Concomitant]
  10. DYAZIDE [Concomitant]
  11. OXYGEN [Concomitant]
  12. ZELNORM [Concomitant]
  13. PREVACID [Concomitant]

REACTIONS (19)
  - ABDOMINAL DISTENSION [None]
  - CONVULSION [None]
  - DEPRESSION [None]
  - DIZZINESS [None]
  - DRUG INEFFECTIVE [None]
  - DRUG INTERACTION INHIBITION [None]
  - DYSSTASIA [None]
  - FEELING ABNORMAL [None]
  - HEADACHE [None]
  - HEPATIC CYST [None]
  - HYPERSENSITIVITY [None]
  - INSOMNIA [None]
  - LIVER DISORDER [None]
  - MALAISE [None]
  - NAUSEA [None]
  - OEDEMA MOUTH [None]
  - PHARYNGEAL OEDEMA [None]
  - SUICIDAL IDEATION [None]
  - WEIGHT INCREASED [None]
